FAERS Safety Report 10644670 (Version 3)
Quarter: 2015Q1

REPORT INFORMATION
  Report Type: Report from Study
  Country: DE (occurrence: DE)
  Receive Date: 20141210
  Receipt Date: 20150101
  Transmission Date: 20150720
  Serious: Yes (Death)
  Sender: FDA-Public Use
  Company Number: DE-ROCHE-1487597

PATIENT
  Age: 63 Year
  Sex: Female
  Weight: 80 kg

DRUGS (4)
  1. TOCILIZUMAB [Suspect]
     Active Substance: TOCILIZUMAB
     Route: 042
     Dates: end: 20140818
  2. TOCILIZUMAB [Suspect]
     Active Substance: TOCILIZUMAB
     Indication: RHEUMATOID ARTHRITIS
     Route: 058
     Dates: start: 20140705
  3. TOCILIZUMAB [Suspect]
     Active Substance: TOCILIZUMAB
     Indication: RHEUMATOID ARTHRITIS
     Dosage: 08/MAY/2014
     Route: 042
     Dates: start: 20140407, end: 20140604
  4. MARCUMAR [Concomitant]
     Active Substance: PHENPROCOUMON
     Indication: DEEP VEIN THROMBOSIS
     Route: 065

REACTIONS (4)
  - Peritonitis [Fatal]
  - Multi-organ failure [Fatal]
  - Diverticular perforation [Fatal]
  - Sepsis [Fatal]

NARRATIVE: CASE EVENT DATE: 201409
